FAERS Safety Report 7299521-6 (Version None)
Quarter: 2011Q1

REPORT INFORMATION
  Report Type: 
  Country: None (occurrence: None)
  Receive Date: 20110217
  Receipt Date: 20110208
  Transmission Date: 20110831
  Serious: No
  Sender: FDA-Public Use
  Company Number: US-ELI_LILLY_AND_COMPANY-US201101001281

PATIENT
  Sex: Female

DRUGS (15)
  1. REMERON [Concomitant]
     Dosage: 30 D/F, UNK
     Route: 048
  2. XANAX [Concomitant]
     Dosage: 0.5 D/F, UNK
     Route: 048
  3. CYMBALTA [Suspect]
     Indication: ANXIETY
     Dosage: 60 MG, DAILY (1/D)
     Route: 048
     Dates: start: 20101103, end: 20101101
  4. HUMALIN [Concomitant]
  5. ALESSE [Concomitant]
     Dosage: UNK, DAILY (1/D)
     Route: 048
  6. HUMULIN N [Concomitant]
  7. HUMALOG [Concomitant]
     Indication: DIABETES MELLITUS
  8. AMBIEN CR [Concomitant]
     Dosage: 12.5 D/F, UNK
  9. NYSTATIN [Concomitant]
     Dosage: UNK, 2/D
     Route: 061
  10. CYMBALTA [Suspect]
     Dosage: 40 MG, UNK
     Dates: start: 20101101
  11. HUMALOG [Concomitant]
  12. GLUCOPHAGE [Concomitant]
     Indication: DIABETES MELLITUS
     Dosage: 500 D/F, UNK
  13. LUNESTA [Concomitant]
     Dosage: 2 MG, EACH EVENING
     Route: 048
  14. PROVENTIL-HFA [Concomitant]
     Dosage: 2 D/F, UNK
     Route: 055
  15. SIMVASTATIN [Concomitant]
     Indication: BLOOD CHOLESTEROL
     Dosage: 20 MG, UNK

REACTIONS (11)
  - GLYCOSYLATED HAEMOGLOBIN INCREASED [None]
  - HEADACHE [None]
  - JOINT STIFFNESS [None]
  - BLOOD GLUCOSE INCREASED [None]
  - PARAESTHESIA [None]
  - WEIGHT INCREASED [None]
  - BLOOD CHOLESTEROL INCREASED [None]
  - ASPARTATE AMINOTRANSFERASE INCREASED [None]
  - ALANINE AMINOTRANSFERASE INCREASED [None]
  - PARAESTHESIA ORAL [None]
  - VITAMIN D DECREASED [None]
